FAERS Safety Report 7787351-8 (Version None)
Quarter: 2011Q3

REPORT INFORMATION
  Report Type: 
  Country: None (occurrence: None)
  Receive Date: 20110929
  Receipt Date: 20110919
  Transmission Date: 20111222
  Serious: Yes (Hospitalization, Other)
  Sender: FDA-Public Use
  Company Number: PHHY2011DE78286

PATIENT
  Sex: Male
  Weight: 120 kg

DRUGS (7)
  1. FALICARD [Concomitant]
     Route: 048
  2. ONBREZ [Suspect]
     Dosage: 150 UG, QD
  3. METFORMIN HCL [Concomitant]
     Route: 048
  4. OMEPRAZOLE [Concomitant]
     Route: 048
  5. SPIRIVA [Concomitant]
     Indication: CHRONIC OBSTRUCTIVE PULMONARY DISEASE
  6. ONBREZ [Suspect]
     Indication: CHRONIC OBSTRUCTIVE PULMONARY DISEASE
     Dosage: 300 UG, QD
     Dates: start: 20110601
  7. LISINOPRIL [Concomitant]
     Route: 048

REACTIONS (1)
  - TACHYARRHYTHMIA [None]
